FAERS Safety Report 13333872 (Version 1)
Quarter: 2017Q1

REPORT INFORMATION
  Report Type: Spontaneous
  Country: US (occurrence: US)
  Receive Date: 20170314
  Receipt Date: 20170314
  Transmission Date: 20170428
  Serious: Yes (Life-Threatening, Hospitalization, Other)
  Sender: FDA-Public Use
  Company Number: US-SA-2017SA039961

PATIENT
  Age: 53 Year
  Sex: Male

DRUGS (7)
  1. LEVEMIR [Concomitant]
     Active Substance: INSULIN DETEMIR
     Dosage: VIAL
  2. TRESIBA [Concomitant]
     Active Substance: INSULIN DEGLUDEC
  3. SOLOSTAR [Concomitant]
     Active Substance: DEVICE
  4. TOUJEO [Concomitant]
     Active Substance: INSULIN GLARGINE
  5. LANTUS [Suspect]
     Active Substance: INSULIN GLARGINE
     Indication: TYPE 2 DIABETES MELLITUS
     Route: 065
     Dates: start: 2005
  6. LANTUS [Suspect]
     Active Substance: INSULIN GLARGINE
     Indication: TYPE 2 DIABETES MELLITUS
     Dosage: DOSE:100 UNIT(S)
     Route: 065
  7. HUMALOG [Concomitant]
     Active Substance: INSULIN LISPRO
     Dosage: SLIDING SCALE

REACTIONS (12)
  - Blood glucose decreased [Unknown]
  - Product use issue [Unknown]
  - Gait disturbance [Unknown]
  - Cardio-respiratory arrest [Unknown]
  - Renal failure [Unknown]
  - Gallbladder disorder [Unknown]
  - Hernia [Unknown]
  - Ankle fracture [Unknown]
  - Loss of consciousness [Unknown]
  - Nerve injury [Unknown]
  - Blood glucose increased [Unknown]
  - Weight increased [Unknown]

NARRATIVE: CASE EVENT DATE: 201506
